FAERS Safety Report 12601373 (Version 3)
Quarter: 2016Q3

REPORT INFORMATION
  Report Type: Report from Study
  Country: CA (occurrence: CA)
  Receive Date: 20160728
  Receipt Date: 20160921
  Transmission Date: 20161109
  Serious: Yes (Other)
  Sender: FDA-Public Use
  Company Number: CA-BRISTOL-MYERS SQUIBB COMPANY-BMS-2016-058411

PATIENT
  Age: 59 Year
  Sex: Female

DRUGS (2)
  1. FRAGMIN [Concomitant]
     Active Substance: DALTEPARIN SODIUM
     Indication: PRODUCT USED FOR UNKNOWN INDICATION
     Route: 065
  2. NIVOLUMAB [Suspect]
     Active Substance: NIVOLUMAB
     Indication: LUNG NEOPLASM MALIGNANT
     Dosage: 155.1 MG, Q2WK
     Route: 065
     Dates: start: 20160420

REACTIONS (2)
  - Haematoma [Not Recovered/Not Resolved]
  - Blue toe syndrome [Not Recovered/Not Resolved]

NARRATIVE: CASE EVENT DATE: 20160714
